FAERS Safety Report 4672970-8 (Version None)
Quarter: 2005Q2

REPORT INFORMATION
  Report Type: 
  Country: None (occurrence: None)
  Receive Date: 20050524
  Receipt Date: 20050519
  Transmission Date: 20051028
  Serious: Yes (Hospitalization, Disabling)
  Sender: FDA-Public Use
  Company Number: NO-MERCK-0505NOR00014

PATIENT
  Age: 80 Year
  Sex: Female

DRUGS (7)
  1. VIOXX [Suspect]
     Indication: OSTEOARTHRITIS
     Route: 048
     Dates: end: 20041201
  2. ZOPICLONE [Concomitant]
     Route: 048
  3. AMLODIPINE BESYLATE [Concomitant]
     Route: 048
  4. ZUCLOPENTHIXOL HYDROCHLORIDE [Concomitant]
     Route: 048
  5. ATENOLOL [Concomitant]
     Route: 048
  6. ACETAMINOPHEN [Concomitant]
     Route: 048
  7. ETORICOXIB [Suspect]
     Indication: OSTEOARTHRITIS
     Route: 048
     Dates: end: 20050401

REACTIONS (1)
  - CEREBRAL INFARCTION [None]
